FAERS Safety Report 24325632 (Version 1)
Quarter: 2024Q3

REPORT INFORMATION
  Report Type: Spontaneous
  Country: BR (occurrence: BR)
  Receive Date: 20240917
  Receipt Date: 20240917
  Transmission Date: 20241017
  Serious: Yes (Other)
  Sender: NOVO NORDISK
  Company Number: BR-NOVOPROD-1279493

PATIENT
  Age: 716 Month
  Sex: Female

DRUGS (2)
  1. OZEMPIC [Suspect]
     Active Substance: SEMAGLUTIDE
     Dosage: 12 CLICKS(12 CLICKS ON PREVIOUS PEN AND 12 CLICKS OF A NEW PEN)
     Dates: end: 2024
  2. OZEMPIC [Suspect]
     Active Substance: SEMAGLUTIDE
     Indication: Product used for unknown indication
     Dosage: 34 CLICKS

REACTIONS (3)
  - Serum ferritin increased [Unknown]
  - Drug-induced liver injury [Unknown]
  - Wrong technique in product usage process [Recovered/Resolved]
